FAERS Safety Report 7024851-2 (Version None)
Quarter: 2010Q3

REPORT INFORMATION
  Report Type: 
  Country: None (occurrence: None)
  Receive Date: 20100929
  Receipt Date: 20100914
  Transmission Date: 20110219
  Serious: Yes (Other)
  Sender: FDA-Public Use
  Company Number: TRP_07267_2010

PATIENT

DRUGS (4)
  1. AMPHOCIL (AMPHOCIL - AMPHOTERICIN B COLLOIDAL DISPERSION) (NOT SPECIFI [Suspect]
     Indication: VISCERAL LEISHMANIASIS
     Dosage: 1 MG/KG PER DAY FOR 1 DAY, 2 MG/KG PER DAY FOR 1 DAY, 3 MG/KG PER DAY FOR 4 DAYS
  2. AMPHOCIL (AMPHOCIL - AMPHOTERICIN B COLLOIDAL DISPERSION) (NOT SPECIFI [Suspect]
     Indication: VISCERAL LEISHMANIASIS
     Dosage: 1 MG/KG PER DAY FOR 1 DAY, 2 MG/KG PER DAY FOR 1 DAY, 3 MG/KG PER DAY FOR 4 DAYS
  3. AMPHOCIL (AMPHOCIL - AMPHOTERICIN B COLLOIDAL DISPERSION) (NOT SPECIFI [Suspect]
     Indication: VISCERAL LEISHMANIASIS
     Dosage: 1 MG/KG PER DAY FOR 1 DAY, 2 MG/KG PER DAY FOR 1 DAY, 3 MG/KG PER DAY FOR 4 DAYS
  4. PARACETAMOL [Concomitant]

REACTIONS (12)
  - BACK PAIN [None]
  - BLOOD ALKALINE PHOSPHATASE INCREASED [None]
  - BLOOD CREATININE INCREASED [None]
  - CHILLS [None]
  - DISEASE RECURRENCE [None]
  - DRUG HYPERSENSITIVITY [None]
  - HYPERBILIRUBINAEMIA [None]
  - HYPOTENSION [None]
  - PYREXIA [None]
  - THERAPY CESSATION [None]
  - VISCERAL LEISHMANIASIS [None]
  - VOMITING [None]
